FAERS Safety Report 7091157-5 (Version None)
Quarter: 2010Q4

REPORT INFORMATION
  Report Type: 
  Country: None (occurrence: None)
  Receive Date: 20101109
  Receipt Date: 20101029
  Transmission Date: 20110411
  Serious: Yes (Hospitalization)
  Sender: FDA-Public Use
  Company Number: DK-ROCHE-737918

PATIENT
  Age: 75 Year
  Sex: Female

DRUGS (2)
  1. ROACTEMRA [Suspect]
     Route: 065
     Dates: start: 20100101, end: 20100817
  2. ROACTEMRA [Suspect]
     Dosage: TREATMENT WAS PAUSED FOR 1 MONTH AFTER 17 AUGUST 2010
     Route: 065

REACTIONS (2)
  - ARTHRALGIA [None]
  - SEPTIC ARTHRITIS STREPTOCOCCAL [None]
